FAERS Safety Report 8609954 (Version 3)
Quarter: 2018Q1

REPORT INFORMATION
  Report Type: Spontaneous
  Country: IT (occurrence: IT)
  Receive Date: 20120612
  Receipt Date: 20180102
  Transmission Date: 20180509
  Serious: Yes (Other)
  Sender: FDA-Public Use
  Company Number: PHHY2012IT049242

PATIENT
  Age: 79 Year
  Sex: Female

DRUGS (2)
  1. FEMARA [Concomitant]
     Active Substance: LETROZOLE
     Indication: PRODUCT USED FOR UNKNOWN INDICATION
     Dosage: 2.5 MG, UNK
     Route: 065
  2. ZOMETA [Suspect]
     Active Substance: ZOLEDRONIC ACID
     Indication: PLASMA CELL MYELOMA
     Dosage: 4 MG/100 ML, QMO
     Route: 042
     Dates: start: 20090101, end: 20101231

REACTIONS (3)
  - Osteonecrosis of jaw [Recovering/Resolving]
  - Osteonecrosis [Recovering/Resolving]
  - Primary sequestrum [Recovering/Resolving]

NARRATIVE: CASE EVENT DATE: 20120316
